FAERS Safety Report 17297063 (Version 1)
Quarter: 2020Q1

REPORT INFORMATION
  Report Type: Spontaneous
  Country: GB (occurrence: GB)
  Receive Date: 20200121
  Receipt Date: 20200121
  Transmission Date: 20200409
  Serious: Yes (Other)
  Sender: FDA-Public Use
  Company Number: GB-SAMSUNG BIOEPIS-SB-2020-00562

PATIENT
  Age: 38 Year
  Sex: Male

DRUGS (1)
  1. IMRALDI [Suspect]
     Active Substance: ADALIMUMAB
     Indication: CROHN^S DISEASE
     Route: 058
     Dates: start: 20190121, end: 20190805

REACTIONS (2)
  - Haemorrhage [Recovered/Resolved]
  - Contusion [Recovered/Resolved]

NARRATIVE: CASE EVENT DATE: 20190228
